FAERS Safety Report 11615409 (Version 1)
Quarter: 2015Q4

REPORT INFORMATION
  Report Type: Spontaneous
  Country: US (occurrence: None)
  Receive Date: 20151008
  Receipt Date: 20151008
  Transmission Date: 20160304
  Serious: Yes (Hospitalization)
  Sender: FDA-Public Use
  Company Number: None

PATIENT
  Age: 54 Year
  Sex: Female
  Weight: 61.24 kg

DRUGS (2)
  1. ENBREL [Suspect]
     Active Substance: ETANERCEPT
     Indication: PSORIASIS
  2. OTEZLA [Concomitant]
     Active Substance: APREMILAST

REACTIONS (3)
  - Pneumonia [None]
  - Liver function test abnormal [None]
  - Multi-organ failure [None]

NARRATIVE: CASE EVENT DATE: 20140317
